FAERS Safety Report 13930090 (Version 2)
Quarter: 2017Q4

REPORT INFORMATION
  Report Type: Report from Study
  Country: US (occurrence: US)
  Receive Date: 20170901
  Receipt Date: 20171024
  Transmission Date: 20180320
  Serious: Yes (Hospitalization)
  Sender: FDA-Public Use
  Company Number: US-PFIZER INC-2017371540

PATIENT
  Age: 37 Year
  Sex: Male
  Weight: 62 kg

DRUGS (16)
  1. AXITINIB [Suspect]
     Active Substance: AXITINIB
     Dosage: 7 MG, 2X/DAY
     Route: 048
     Dates: start: 20170713, end: 20170727
  2. XANAX [Concomitant]
     Active Substance: ALPRAZOLAM
     Dosage: 1 MG, UNK
  3. NEURONTIN [Concomitant]
     Active Substance: GABAPENTIN
     Dosage: 300 MG, UNK
  4. FLOMAX [Concomitant]
     Active Substance: TAMSULOSIN HYDROCHLORIDE
     Dosage: 0.4 MG, 24 HR
  5. NORCO [Concomitant]
     Active Substance: ACETAMINOPHEN\HYDROCODONE BITARTRATE
     Dosage: UNK
  6. COLACE [Concomitant]
     Active Substance: DOCUSATE SODIUM
     Dosage: 100 MG, UNK
  7. MOTRIN [Concomitant]
     Active Substance: IBUPROFEN
     Dosage: 800 MG, UNK
  8. MEDICAL MARIJUANA [Concomitant]
     Active Substance: CANNABIS SATIVA SUBSP. INDICA TOP
  9. VITAMIN D3 [Concomitant]
     Active Substance: CHOLECALCIFEROL
     Dosage: 5000 IU, UNK
  10. MS CONTIN [Concomitant]
     Active Substance: MORPHINE SULFATE
     Dosage: 30 MG, 12 HR
  11. MIRALAX [Concomitant]
     Active Substance: POLYETHYLENE GLYCOL 3350
     Dosage: 17 G, UNK
  12. SENOKOT XTRA [Concomitant]
     Dosage: 17.2 MG, UNK
  13. PRILOSEC [Concomitant]
     Active Substance: OMEPRAZOLE MAGNESIUM
     Dosage: 10 MG, UNK
  14. DECADRON [Concomitant]
     Active Substance: DEXAMETHASONE
     Dosage: 4 MG, UNK
  15. AXITINIB [Suspect]
     Active Substance: AXITINIB
     Dosage: 10 MG, 2X/DAY
     Route: 048
     Dates: start: 20170727, end: 20170801
  16. AXITINIB [Suspect]
     Active Substance: AXITINIB
     Indication: NASOPHARYNGEAL CANCER METASTATIC
     Dosage: 5 MG, 2X/DAY
     Route: 048
     Dates: start: 20170629, end: 20170713

REACTIONS (1)
  - Sepsis [Unknown]

NARRATIVE: CASE EVENT DATE: 20170821
